FAERS Safety Report 7574830 (Version 2)
Quarter: 2014Q1

REPORT INFORMATION
  Report Type: Spontaneous
  Country: AU (occurrence: AU)
  Receive Date: 20100907
  Receipt Date: 20140106
  Transmission Date: 20141002
  Serious: No
  Sender: FDA-Public Use
  Company Number: AU-JNJFOC-20100900826

PATIENT
  Sex: Male

DRUGS (1)
  1. DUROGESIC [Suspect]
     Indication: BACK PAIN
     Route: 062

REACTIONS (9)
  - Constipation [Not Recovered/Not Resolved]
  - Treatment noncompliance [Unknown]
  - Wrong technique in drug usage process [Not Recovered/Not Resolved]
  - Nausea [Not Recovered/Not Resolved]
  - Balance disorder [Not Recovered/Not Resolved]
  - Drug ineffective [Not Recovered/Not Resolved]
  - Drug effect increased [Not Recovered/Not Resolved]
  - Product quality issue [Unknown]
  - Product quality issue [Unknown]
